FAERS Safety Report 9935251 (Version 2)
Quarter: 2014Q1

REPORT INFORMATION
  Report Type: Report from Study
  Country: RU (occurrence: RU)
  Receive Date: 20140228
  Receipt Date: 20140228
  Transmission Date: 20141002
  Serious: Yes (Other)
  Sender: FDA-Public Use
  Company Number: PHHY2014RU020347

PATIENT
  Age: 58 Year
  Sex: Female

DRUGS (4)
  1. ACLASTA [Suspect]
     Dosage: UNK
     Route: 042
  2. ACLASTA [Suspect]
     Dosage: UNK
     Route: 042
  3. ACLASTA [Suspect]
     Dosage: UNK
     Route: 042
  4. ACLASTA [Suspect]
     Dosage: UNK
     Route: 042
     Dates: start: 20131128

REACTIONS (3)
  - Fall [Not Recovered/Not Resolved]
  - Ankle fracture [Not Recovered/Not Resolved]
  - Hand fracture [Not Recovered/Not Resolved]
